FAERS Safety Report 10455355 (Version 1)
Quarter: 2014Q3

REPORT INFORMATION
  Report Type: Spontaneous
  Country: DE (occurrence: DE)
  Receive Date: 20140916
  Receipt Date: 20140916
  Transmission Date: 20150326
  Serious: Yes (Other)
  Sender: FDA-Public Use
  Company Number: DE-ROCHE-1462438

PATIENT
  Sex: Female

DRUGS (3)
  1. CARBOPLATIN. [Suspect]
     Active Substance: CARBOPLATIN
     Indication: LUNG ADENOCARCINOMA
     Route: 065
  2. AVASTIN [Suspect]
     Active Substance: BEVACIZUMAB
     Indication: LUNG ADENOCARCINOMA
     Route: 065
  3. PEMETREXED [Suspect]
     Active Substance: PEMETREXED
     Indication: LUNG ADENOCARCINOMA
     Route: 065

REACTIONS (1)
  - Scleroderma [Unknown]
